FAERS Safety Report 11838930 (Version 1)
Quarter: 2015Q4

REPORT INFORMATION
  Report Type: Spontaneous
  Country: US (occurrence: US)
  Receive Date: 20151216
  Receipt Date: 20151216
  Transmission Date: 20160305
  Serious: Yes (Other)
  Sender: FDA-Public Use
  Company Number: US-ROCHE-1675942

PATIENT
  Age: 86 Year
  Sex: Male

DRUGS (1)
  1. RITUXAN [Suspect]
     Active Substance: RITUXIMAB
     Indication: LYMPHOMA
     Route: 065
     Dates: end: 20141210

REACTIONS (8)
  - Hypothyroidism [Not Recovered/Not Resolved]
  - Femur fracture [Unknown]
  - Rehabilitation therapy [Unknown]
  - Asthenia [Unknown]
  - Fall [Unknown]
  - Decreased activity [Unknown]
  - Muscle atrophy [Unknown]
  - Confusional state [Unknown]

NARRATIVE: CASE EVENT DATE: 201501
